FAERS Safety Report 7547133-9 (Version None)
Quarter: 2011Q2

REPORT INFORMATION
  Report Type: 
  Country: None (occurrence: None)
  Receive Date: 20110614
  Receipt Date: 20110602
  Transmission Date: 20111010
  Serious: Yes (Hospitalization)
  Sender: FDA-Public Use
  Company Number: US-ELI_LILLY_AND_COMPANY-US201106001436

PATIENT
  Sex: Male

DRUGS (7)
  1. CIALIS [Suspect]
     Indication: ERECTILE DYSFUNCTION
     Dosage: 10 MG, UNK
     Dates: start: 20090101
  2. COUMADIN [Concomitant]
     Dosage: 5 MG, UNK
  3. GABAPENTIN [Concomitant]
     Dosage: 800 MG, UNK
  4. ZYRTEC [Concomitant]
     Dosage: 10 MG, UNK
  5. ETHANOL [Concomitant]
  6. SIMVASTATIN [Concomitant]
     Dosage: 40 MG, UNK
  7. NEXIUM [Concomitant]
     Dosage: 40 MG, UNK

REACTIONS (6)
  - DYSPNOEA [None]
  - FALL [None]
  - DIZZINESS [None]
  - HEAD INJURY [None]
  - FLUSHING [None]
  - CHILLS [None]
